FAERS Safety Report 5600090-4 (Version None)
Quarter: 2008Q1

REPORT INFORMATION
  Report Type: 
  Country: None (occurrence: None)
  Receive Date: 20080123
  Receipt Date: 20080116
  Transmission Date: 20080703
  Serious: Yes (Hospitalization)
  Sender: FDA-Public Use
  Company Number: A0701291A

PATIENT
  Age: 79 Year
  Sex: Male

DRUGS (4)
  1. AVANDIA [Suspect]
     Indication: DRUG USE FOR UNKNOWN INDICATION
     Route: 048
  2. ATENOLOL [Concomitant]
  3. PLAVIX [Concomitant]
  4. SIMVASTATIN [Concomitant]

REACTIONS (4)
  - ATRIAL FIBRILLATION [None]
  - CHEST PAIN [None]
  - HAEMORRHAGIC DISORDER [None]
  - PALPITATIONS [None]
